FAERS Safety Report 23230644 (Version 1)
Quarter: 2023Q4

REPORT INFORMATION
  Report Type: Spontaneous
  Country: US (occurrence: None)
  Receive Date: 20231124
  Receipt Date: 20231124
  Transmission Date: 20240109
  Serious: Yes (Death)
  Sender: FDA-Public Use
  Company Number: None

PATIENT
  Age: 62 Year
  Sex: Female

DRUGS (9)
  1. TAFINLAR [Suspect]
     Active Substance: DABRAFENIB MESYLATE
     Indication: Non-small cell lung cancer
     Dosage: FREQUENCY : TWICE A DAY;?
     Route: 048
     Dates: start: 20230206
  2. MEKINIST [Suspect]
     Active Substance: TRAMETINIB DIMETHYL SULFOXIDE
     Indication: Non-small cell lung cancer
     Dosage: FREQUENCY : DAILY;?
     Route: 048
     Dates: start: 20230206, end: 20231101
  3. OXYCODONE 5MG IMMEDIATE REL TABS [Concomitant]
  4. BASAGLAR 100 U/ML KWIKPEN INJ 3ML [Concomitant]
  5. LEVOTHYROXINE 0.1MG (100MCG) CAPS [Concomitant]
  6. LOMOTIL 2.5 MG TABLETS [Concomitant]
  7. ONDANSETRON ODT 8MG TABLETS [Concomitant]
  8. PROCHLORPERAZINE 10MG TABLETS [Concomitant]
  9. VENTOLIN HFA INH W/DOS CTR 200PUFFS [Concomitant]

REACTIONS (1)
  - Death [None]

NARRATIVE: CASE EVENT DATE: 20231102
